FAERS Safety Report 9355591 (Version 2)
Quarter: 2013Q3

REPORT INFORMATION
  Report Type: Spontaneous
  Country: JP (occurrence: JP)
  Receive Date: 20130619
  Receipt Date: 20130902
  Transmission Date: 20140515
  Serious: Yes (Other)
  Sender: FDA-Public Use
  Company Number: JP-PFIZER INC-2013152996

PATIENT
  Age: 79 Year
  Sex: Male

DRUGS (8)
  1. NORVASC [Suspect]
     Indication: HYPERTENSION
     Dosage: 5 MG, DAILY
     Route: 048
  2. HALFDIGOXIN [Interacting]
     Indication: ATRIAL FIBRILLATION
     Dosage: UNK
     Route: 048
     Dates: start: 1999, end: 20130221
  3. WARFARIN [Concomitant]
     Indication: THROMBOSIS PROPHYLAXIS
     Dosage: 3 MG, DAILY
     Route: 048
  4. MICOMBI COMBINATION [Concomitant]
     Indication: HYPERTENSION
     Dosage: 2 TABLETS, DAILY
     Route: 048
  5. BAYASPIRIN [Concomitant]
     Indication: THROMBOSIS PROPHYLAXIS
     Dosage: 200 MG, DAILY
     Route: 048
  6. CELECOX [Concomitant]
     Dosage: 50 MG, DAILY
     Route: 048
  7. PARIET [Concomitant]
     Indication: ABDOMINAL PAIN UPPER
     Dosage: 100 MG, DAILY
     Route: 048
  8. JANUVIA [Concomitant]
     Indication: HYPERGLYCAEMIA
     Dosage: 10 MG, DAILY
     Route: 048

REACTIONS (7)
  - Drug interaction [Recovered/Resolved]
  - Toxicity to various agents [Recovered/Resolved]
  - Atrioventricular block complete [Recovered/Resolved]
  - Bradycardia [Recovered/Resolved]
  - Ventricular extrasystoles [Recovered/Resolved]
  - Decreased appetite [Recovered/Resolved]
  - Nausea [Recovered/Resolved]
